FAERS Safety Report 6094176-0 (Version None)
Quarter: 2009Q1

REPORT INFORMATION
  Report Type: 
  Country: None (occurrence: None)
  Receive Date: 20090224
  Receipt Date: 20090224
  Transmission Date: 20090719
  Serious: Yes (Hospitalization, Other)
  Sender: FDA-Public Use
  Company Number: None

PATIENT
  Age: 51 Year
  Sex: Female
  Weight: 93.441 kg

DRUGS (1)
  1. CYMBALTA [Suspect]
     Indication: POST-TRAUMATIC STRESS DISORDER
     Dosage: 60 MG BID PO
     Route: 048
     Dates: start: 20090101, end: 20090223

REACTIONS (4)
  - CHEST PAIN [None]
  - HYPERTENSION [None]
  - MUSCLE TWITCHING [None]
  - THROAT TIGHTNESS [None]
